FAERS Safety Report 17743057 (Version 1)
Quarter: 2020Q2

REPORT INFORMATION
  Report Type: Spontaneous
  Country: US (occurrence: US)
  Receive Date: 20200504
  Receipt Date: 20200504
  Transmission Date: 20200714
  Serious: No
  Sender: FDA-Public Use
  Company Number: US-ALKERMES INC.-ALK-2020-001811

PATIENT
  Sex: Female

DRUGS (3)
  1. VIVITROL [Suspect]
     Active Substance: NALTREXONE
     Indication: ALCOHOLISM
     Dosage: 380 MG, QMO
     Route: 030
     Dates: start: 20200425
  2. VIVITROL [Suspect]
     Active Substance: NALTREXONE
     Dosage: 380 MG, QMO
     Route: 030
  3. VIVITROL [Suspect]
     Active Substance: NALTREXONE
     Dosage: 380 MG, QMO
     Route: 030

REACTIONS (7)
  - Tremor [Not Recovered/Not Resolved]
  - Feeling abnormal [Unknown]
  - Feeling hot [Unknown]
  - Ill-defined disorder [Not Recovered/Not Resolved]
  - Retching [Unknown]
  - Feeling cold [Unknown]
  - Alcoholism [Unknown]

NARRATIVE: CASE EVENT DATE: 202004
